FAERS Safety Report 6943048-5 (Version None)
Quarter: 2010Q3

REPORT INFORMATION
  Report Type: 
  Country: None (occurrence: None)
  Receive Date: 20100826
  Receipt Date: 20100819
  Transmission Date: 20110219
  Serious: Yes (Other)
  Sender: FDA-Public Use
  Company Number: NL-B.I. PHARMACEUTICALS,INC./RIDGEFIELD-2010-NL-00370NL

PATIENT
  Sex: Male

DRUGS (2)
  1. SPIRIVA [Suspect]
     Dosage: 2 PUF
     Route: 048
     Dates: start: 20100709, end: 20100711
  2. SPIRIVA [Suspect]
     Dates: start: 20100712

REACTIONS (2)
  - MYOCARDIAL INFARCTION [None]
  - PALPITATIONS [None]
